FAERS Safety Report 11831650 (Version 1)
Quarter: 2015Q4

REPORT INFORMATION
  Report Type: Report from Study
  Country: JP (occurrence: JP)
  Receive Date: 20151214
  Receipt Date: 20151214
  Transmission Date: 20160305
  Serious: Yes (Death)
  Sender: FDA-Public Use
  Company Number: JP-OTSUKA-2015_016533

PATIENT

DRUGS (5)
  1. TOLVAPTAN [Suspect]
     Active Substance: TOLVAPTAN
     Indication: FLUID RETENTION
     Dosage: 7.5 MG, QD (EVERY MORNING)
     Route: 048
     Dates: start: 20150903, end: 20151109
  2. LOXOPROFEN SODIUM [Concomitant]
     Active Substance: LOXOPROFEN SODIUM
     Indication: PRODUCT USED FOR UNKNOWN INDICATION
     Dosage: 60 MG, DAILY DOSE
     Route: 048
     Dates: end: 20151109
  3. PORTOLAC [Concomitant]
     Active Substance: LACTITOL
     Indication: PRODUCT USED FOR UNKNOWN INDICATION
     Dosage: 18 G, DAILY DOSE
     Route: 048
     Dates: end: 20151109
  4. PARIET [Concomitant]
     Active Substance: RABEPRAZOLE SODIUM
     Indication: PRODUCT USED FOR UNKNOWN INDICATION
     Dosage: 10 MG, DAILY DOSE
     Route: 048
     Dates: end: 20151109
  5. ISOLEUCINE W/LEUCINE/VALINE [Concomitant]
     Active Substance: ISOLEUCINE\LEUCINE\VALINE
     Indication: PRODUCT USED FOR UNKNOWN INDICATION
     Dosage: 12.45 G, DAILY DOSE
     Route: 048
     Dates: end: 20151109

REACTIONS (1)
  - Death [Fatal]
